FAERS Safety Report 24992692 (Version 1)
Quarter: 2025Q1

REPORT INFORMATION
  Report Type: Spontaneous
  Country: US (occurrence: US)
  Receive Date: 20250221
  Receipt Date: 20250221
  Transmission Date: 20250409
  Serious: No
  Sender: ALEXION PHARMACEUTICALS
  Company Number: US-AstraZeneca-CH-00810496A

PATIENT

DRUGS (1)
  1. FASENRA [Suspect]
     Active Substance: BENRALIZUMAB
     Route: 065

REACTIONS (5)
  - Nasal congestion [Unknown]
  - Arthralgia [Unknown]
  - Dyspnoea [Unknown]
  - Anosmia [Unknown]
  - Ageusia [Not Recovered/Not Resolved]
